FAERS Safety Report 6161168-2 (Version None)
Quarter: 2009Q2

REPORT INFORMATION
  Report Type: 
  Country: None (occurrence: None)
  Receive Date: 20090417
  Receipt Date: 20090417
  Transmission Date: 20091009
  Serious: Yes (Life-Threatening)
  Sender: FDA-Public Use
  Company Number: None

PATIENT
  Sex: Female
  Weight: 53.5244 kg

DRUGS (1)
  1. LORCET-HD [Suspect]
     Dosage: 650/7.5 MG 1 TABLET 4-6 PO
     Route: 048

REACTIONS (2)
  - ANAPHYLACTIC REACTION [None]
  - REACTION TO DRUG EXCIPIENTS [None]
